FAERS Safety Report 8017485-4 (Version None)
Quarter: 2011Q4

REPORT INFORMATION
  Report Type: 
  Country: None (occurrence: None)
  Receive Date: 20111228
  Receipt Date: 20111228
  Transmission Date: 20120403
  Serious: Yes (Life-Threatening, Hospitalization, Disabling)
  Sender: FDA-Public Use
  Company Number: None

PATIENT
  Age: 45 Year
  Sex: Female
  Weight: 104.3273 kg

DRUGS (1)
  1. VICTOZA [Suspect]
     Indication: BLOOD GLUCOSE INCREASED
     Dosage: 0.6 MG - 1.8 ONCE DAILY  5/14 - 5/28;  7/2 - 7/28

REACTIONS (4)
  - BLOOD MAGNESIUM ABNORMAL [None]
  - ARRHYTHMIA [None]
  - DIARRHOEA [None]
  - SLEEP APNOEA SYNDROME [None]
